FAERS Safety Report 16665172 (Version 1)
Quarter: 2019Q3

REPORT INFORMATION
  Report Type: Spontaneous
  Country: US (occurrence: US)
  Receive Date: 20190803
  Receipt Date: 20190803
  Transmission Date: 20191004
  Serious: Yes (Other)
  Sender: FDA-Public Use
  Company Number: US-ACCORD-110129

PATIENT
  Age: 50 Year
  Sex: Female
  Weight: 39.92 kg

DRUGS (6)
  1. MAXALT-MLT [Concomitant]
     Active Substance: RIZATRIPTAN BENZOATE
     Dates: start: 2000
  2. DOCETAXEL ACCORD [Suspect]
     Active Substance: DOCETAXEL
     Indication: BREAST CANCER
     Dosage: NUMBER OF CYCLES: 04
     Dates: start: 20141114, end: 20150102
  3. CYTOXAN [Suspect]
     Active Substance: CYCLOPHOSPHAMIDE
     Indication: BREAST CANCER
  4. TRAMADOL. [Concomitant]
     Active Substance: TRAMADOL
     Dates: start: 2000
  5. TOPIRAMATE. [Concomitant]
     Active Substance: TOPIRAMATE
     Dates: start: 2000
  6. DOXORUBICIN [Suspect]
     Active Substance: DOXORUBICIN
     Indication: BREAST CANCER

REACTIONS (1)
  - Alopecia [Not Recovered/Not Resolved]

NARRATIVE: CASE EVENT DATE: 201411
